FAERS Safety Report 4310807-7 (Version None)
Quarter: 2004Q1

REPORT INFORMATION
  Report Type: 
  Country: None (occurrence: None)
  Receive Date: 20040302
  Receipt Date: 20040216
  Transmission Date: 20041129
  Serious: Yes (Hospitalization)
  Sender: FDA-Public Use
  Company Number: 2002AP03224

PATIENT
  Age: 54 Year
  Sex: Male

DRUGS (2)
  1. ACCOLATE [Suspect]
     Indication: ASTHMA
     Dates: start: 20011019, end: 20011203
  2. PREDONINE [Concomitant]

REACTIONS (8)
  - BIOPSY KIDNEY ABNORMAL [None]
  - EOSINOPHILIA [None]
  - EOSINOPHILIC CELLULITIS [None]
  - HAEMATURIA [None]
  - NEPHROTIC SYNDROME [None]
  - PROTEINURIA [None]
  - RASH ERYTHEMATOUS [None]
  - RENAL FAILURE ACUTE [None]
